FAERS Safety Report 4390801-0 (Version None)
Quarter: 2004Q3

REPORT INFORMATION
  Report Type: 
  Country: None (occurrence: None)
  Receive Date: 20040706
  Receipt Date: 20040706
  Transmission Date: 20050211
  Serious: Yes (Other)
  Sender: FDA-Public Use
  Company Number: None

PATIENT
  Age: 69 Year
  Sex: Female

DRUGS (1)
  1. NITROPASTE (GENERIC) 0.2 MG/HR [Suspect]
     Indication: CORONARY ARTERY DISEASE
     Dosage: DAILY
     Dates: start: 20040101

REACTIONS (1)
  - APPLICATION SITE DERMATITIS [None]
